FAERS Safety Report 5052237-9 (Version None)
Quarter: 2006Q2

REPORT INFORMATION
  Report Type: 
  Country: None (occurrence: None)
  Receive Date: 20060614
  Receipt Date: 20060219
  Transmission Date: 20061013
  Serious: Yes (Other)
  Sender: FDA-Public Use
  Company Number: 437327

PATIENT
  Sex: Female

DRUGS (11)
  1. BONIVA [Suspect]
     Indication: DRUG USE FOR UNKNOWN INDICATION
     Dates: start: 20060213
  2. VITEYES AREDS FORMULA (ALPHA-TOCOPHEROL/ASCORBIC ACID/BETA CAROTENE/CU [Concomitant]
  3. PREVACID [Concomitant]
  4. PREMARIN [Concomitant]
  5. OXYCODONE (OXYCODONE) [Concomitant]
  6. DITROPAN XL [Concomitant]
  7. DIOVAN [Concomitant]
  8. ZOLOFT (SERTRELAINE HYDROCHLORIDE) [Concomitant]
  9. SYNTHROID [Concomitant]
  10. LUNESTA [Concomitant]
  11. MELATONIN (MELATONIN) [Concomitant]

REACTIONS (2)
  - FATIGUE [None]
  - INSOMNIA [None]
